FAERS Safety Report 22713236 (Version 3)
Quarter: 2024Q4

REPORT INFORMATION
  Report Type: Spontaneous
  Country: US (occurrence: US)
  Receive Date: 20230717
  Receipt Date: 20241216
  Transmission Date: 20250115
  Serious: Yes (Other)
  Sender: PFIZER
  Company Number: US-PFIZER INC-202300249745

PATIENT
  Age: 83 Year
  Sex: Female
  Weight: 65.32 kg

DRUGS (14)
  1. VYNDAMAX [Suspect]
     Active Substance: TAFAMIDIS
     Indication: Amyloidosis
     Dosage: 61 MG, DAILY (61 MILLIGRAMS 1 CAPSULE DAILY)
  2. VYNDAMAX [Suspect]
     Active Substance: TAFAMIDIS
     Indication: Dilated cardiomyopathy
     Dosage: TAKE 1 CAPSULE EVERY DAY
     Route: 048
  3. VYNDAMAX [Suspect]
     Active Substance: TAFAMIDIS
     Dosage: 61 MG, 1X/DAY
     Route: 048
     Dates: start: 2023
  4. DILTIAZEM [Concomitant]
     Active Substance: DILTIAZEM
     Dosage: 240 MG, 1X/DAY (I TAKE ONE OF THEM BY MOUTH A DAY AND I USUALLY TAKE IT AT NIGHT)
     Route: 048
  5. ATENOLOL [Concomitant]
     Active Substance: ATENOLOL
     Dosage: 50 MG, 1X/DAY (I TAKE THAT ONCE A DAY AND I USUALLY TAKE THAT IN THE MORNING)
  6. SPIRONOLACTONE [Concomitant]
     Active Substance: SPIRONOLACTONE
     Dosage: 50 MG, 1X/DAY (I TAKE THAT ONCE A DAY AND I USUALLY TAKE THAT IN THE MORNING)
  7. ALLOPURINOL [Concomitant]
     Active Substance: ALLOPURINOL
     Dosage: 300 MG, 1X/DAY (I TAKE THAT ONCE A DAY AND I TAKE THAT ONE IN THE MORNING)
  8. FORMOTEROL [Concomitant]
     Active Substance: FORMOTEROL
     Indication: Asthma
     Dosage: 20 MG, 2X/DAY (I USUALLY USE THAT IN MY INHALER TWICE A DAY)
     Route: 055
  9. FORMOTEROL [Concomitant]
     Active Substance: FORMOTEROL
     Indication: Dyspnoea
     Dosage: 10 UG/ML, 2X/DAY
  10. BUDESONIDE [Concomitant]
     Active Substance: BUDESONIDE
     Dosage: 0.5 MG, 2X/DAY (I TAKE THAT TWICE A DAY)
  11. OMEPRAZOLE [Concomitant]
     Active Substance: OMEPRAZOLE
     Indication: Gastrooesophageal reflux disease
     Dosage: 20 MG, 1X/DAY
     Route: 048
     Dates: start: 20231106, end: 20231108
  12. OMEPRAZOLE [Concomitant]
     Active Substance: OMEPRAZOLE
     Indication: Dyspepsia
  13. TRELEGY ELLIPTA [Concomitant]
     Active Substance: FLUTICASONE FUROATE\UMECLIDINIUM BROMIDE\VILANTEROL TRIFENATATE
     Indication: Dyspnoea
     Dosage: UNK
  14. BUDESONIDE [Concomitant]
     Active Substance: BUDESONIDE
     Indication: Dyspnoea
     Dosage: 0.25 KG/M3, 2X/DAY

REACTIONS (5)
  - Oedema peripheral [Recovered/Resolved]
  - Cough [Recovering/Resolving]
  - Body height decreased [Unknown]
  - Dyspepsia [Not Recovered/Not Resolved]
  - Oropharyngeal discomfort [Recovering/Resolving]

NARRATIVE: CASE EVENT DATE: 20231001
